FAERS Safety Report 26156320 (Version 1)
Quarter: 2025Q4

REPORT INFORMATION
  Report Type: Spontaneous
  Country: US (occurrence: US)
  Receive Date: 20251215
  Receipt Date: 20251215
  Transmission Date: 20260118
  Serious: No
  Sender: STRIDES
  Company Number: US-STRIDES ARCOLAB LIMITED-2025SP014114

PATIENT
  Sex: Female
  Weight: 123.81 kg

DRUGS (14)
  1. MYCOPHENOLATE MOFETIL [Suspect]
     Active Substance: MYCOPHENOLATE MOFETIL
     Indication: Mixed connective tissue disease
     Dosage: 1000 MILLIGRAM, BID
     Route: 048
     Dates: start: 202408, end: 20251105
  2. AMLODIPINE [Suspect]
     Active Substance: AMLODIPINE BESYLATE
     Indication: Mixed connective tissue disease
     Dosage: 5 MILLIGRAM, QD
     Route: 065
     Dates: start: 2024
  3. PREDNISOLONE [Suspect]
     Active Substance: PREDNISOLONE
     Indication: Mixed connective tissue disease
     Dosage: 5 MILLIGRAM, QD
     Route: 065
     Dates: start: 202507
  4. LOSARTAN [Suspect]
     Active Substance: LOSARTAN
     Indication: Mixed connective tissue disease
     Dosage: 100 MILLIGRAM, QD
     Route: 065
     Dates: start: 2024, end: 20251105
  5. METHYLPHENIDATE [Suspect]
     Active Substance: METHYLPHENIDATE
     Indication: Attention deficit hyperactivity disorder
     Dosage: 54 MILLIGRAM, QD
     Route: 065
     Dates: start: 2020
  6. MELATONIN [Suspect]
     Active Substance: MELATONIN
     Indication: Sleep disorder
     Dosage: 10 MILLIGRAM, AT BED TIME
     Route: 065
     Dates: start: 2010
  7. GABAPENTIN [Suspect]
     Active Substance: GABAPENTIN
     Indication: Pain
     Dosage: 400 MILLIGRAM, TID
     Route: 065
  8. TRILEPTAL [Suspect]
     Active Substance: OXCARBAZEPINE
     Indication: Affective disorder
     Dosage: 300 MILLIGRAM, 2 TAB AM- 3 TAB PM
     Route: 065
     Dates: start: 2020
  9. BENLYSTA [Suspect]
     Active Substance: BELIMUMAB
     Indication: Systemic lupus erythematosus
     Dosage: 200 MILLIGRAM, ONCE A WEEK
     Route: 065
     Dates: start: 2024
  10. TYLENOL [Suspect]
     Active Substance: ACETAMINOPHEN
     Indication: Pain
     Dosage: 100 MILLIGRAM, BID PRN
     Route: 065
     Dates: start: 2025
  11. HYDROXYCHLOROQUINE [Suspect]
     Active Substance: HYDROXYCHLOROQUINE
     Indication: Mixed connective tissue disease
     Dosage: 400 MILLIGRAM, AT BEDTIME
     Route: 065
     Dates: start: 2024
  12. PANTOPRAZOLE [Suspect]
     Active Substance: PANTOPRAZOLE
     Indication: Gastrooesophageal reflux disease
     Dosage: 40 MILLIGRAM, QD
     Route: 065
     Dates: start: 2024
  13. OZEMPIC [Suspect]
     Active Substance: SEMAGLUTIDE
     Indication: Weight
     Dosage: 1 MILLIGRAM, ONCE A WEEK
     Route: 065
     Dates: start: 2024
  14. ALBUTEROL [Suspect]
     Active Substance: ALBUTEROL
     Indication: Asthma
     Dosage: 90 MICROGRAM, PRN WHEN SICK
     Route: 065

REACTIONS (2)
  - Off label use [Unknown]
  - Maternal exposure during pregnancy [Unknown]
